FAERS Safety Report 24039934 (Version 2)
Quarter: 2024Q3

REPORT INFORMATION
  Report Type: Report from Study
  Country: US (occurrence: US)
  Receive Date: 20240702
  Receipt Date: 20240913
  Transmission Date: 20241017
  Serious: Yes (Hospitalization, Other)
  Sender: TAKEDA
  Company Number: US-TAKEDA-2024TUS024560

PATIENT
  Age: 63 Year
  Sex: Female

DRUGS (1)
  1. IXAZOMIB [Suspect]
     Active Substance: IXAZOMIB
     Indication: Primary amyloidosis
     Dosage: 3 MILLIGRAM, 1/WEEK
     Route: 048

REACTIONS (9)
  - Nasopharyngitis [Recovered/Resolved]
  - Tremor [Recovered/Resolved]
  - Rash [Recovered/Resolved]
  - Neuropathy peripheral [Unknown]
  - Arthritis climacteric [Unknown]
  - Skin irritation [Unknown]
  - Nausea [Unknown]
  - Diarrhoea [Unknown]
  - Rash papular [Unknown]

NARRATIVE: CASE EVENT DATE: 20240605
